FAERS Safety Report 15860815 (Version 2)
Quarter: 2019Q1

REPORT INFORMATION
  Report Type: Spontaneous
  Country: TR (occurrence: TR)
  Receive Date: 20190124
  Receipt Date: 20190201
  Transmission Date: 20190417
  Serious: Yes (Other)
  Sender: FDA-Public Use
  Company Number: TR-SUN PHARMACEUTICAL INDUSTRIES LTD-2019RR-196936

PATIENT
  Age: 14 Year
  Sex: Female

DRUGS (1)
  1. TEMOZOLOMIDE. [Suspect]
     Active Substance: TEMOZOLOMIDE
     Indication: GLIOBLASTOMA MULTIFORME
     Dosage: 200 MILLIGRAM, DAILY
     Route: 048

REACTIONS (2)
  - Type IV hypersensitivity reaction [Recovered/Resolved]
  - Rash maculo-papular [Recovered/Resolved]
